FAERS Safety Report 5910164-6 (Version None)
Quarter: 2008Q4

REPORT INFORMATION
  Report Type: 
  Country: None (occurrence: None)
  Receive Date: 20081007
  Receipt Date: 20070921
  Transmission Date: 20090506
  Serious: No
  Sender: FDA-Public Use
  Company Number: US-ASTRAZENECA-2007UW22299

PATIENT
  Age: 74 Year
  Sex: Female
  Weight: 62.1 kg

DRUGS (5)
  1. ARIMIDEX [Suspect]
     Indication: BREAST CANCER
     Route: 048
     Dates: start: 20060101
  2. AVAPRO [Concomitant]
  3. ZANTAC [Concomitant]
  4. XANAX [Concomitant]
     Dosage: 5 MG (1/2 TABLET DAILY)
  5. ANTIBIOTIC [Concomitant]

REACTIONS (5)
  - DRY MOUTH [None]
  - GLOSSODYNIA [None]
  - ORAL CANDIDIASIS [None]
  - SINUSITIS [None]
  - VULVOVAGINAL CANDIDIASIS [None]
